FAERS Safety Report 17297951 (Version 8)
Quarter: 2022Q4

REPORT INFORMATION
  Report Type: Spontaneous
  Country: US (occurrence: US)
  Receive Date: 20200121
  Receipt Date: 20221214
  Transmission Date: 20230113
  Serious: Yes (Other)
  Sender: FDA-Public Use
  Company Number: US-PFIZER INC-2019467124

PATIENT
  Age: 73 Year
  Sex: Female
  Weight: 54 kg

DRUGS (2)
  1. XELJANZ XR [Suspect]
     Active Substance: TOFACITINIB CITRATE
     Indication: Rheumatoid arthritis
     Dosage: 11 MG, 1X/DAY
     Route: 048
     Dates: start: 2019
  2. XELJANZ XR [Suspect]
     Active Substance: TOFACITINIB CITRATE
     Dosage: 11 MG

REACTIONS (9)
  - Spinal fracture [Unknown]
  - Myocardial infarction [Recovered/Resolved]
  - Body height decreased [Unknown]
  - Drug ineffective [Unknown]
  - Product prescribing issue [Unknown]
  - Speech disorder [Not Recovered/Not Resolved]
  - Dysphonia [Unknown]
  - Pain [Not Recovered/Not Resolved]
  - Hypoacusis [Unknown]

NARRATIVE: CASE EVENT DATE: 20190101
